FAERS Safety Report 19584447 (Version 1)
Quarter: 2021Q3

REPORT INFORMATION
  Report Type: Spontaneous
  Country: US (occurrence: US)
  Receive Date: 20210720
  Receipt Date: 20210720
  Transmission Date: 20211014
  Serious: Yes (Death)
  Sender: FDA-Public Use
  Company Number: US-JACOBUS PHARMACEUTICAL COMPANY, INC.-2114038

PATIENT
  Age: 78 Year
  Sex: Male

DRUGS (24)
  1. ALLOPURINOL. [Concomitant]
     Active Substance: ALLOPURINOL
  2. ATORVASTATIN CALCIUM. [Concomitant]
     Active Substance: ATORVASTATIN CALCIUM
  3. IRON [Concomitant]
     Active Substance: IRON
  4. MORPHINE SULFATE. [Concomitant]
     Active Substance: MORPHINE SULFATE
  5. MULTIVITAMIN [Concomitant]
     Active Substance: VITAMINS
  6. MIRALAX [Concomitant]
     Active Substance: POLYETHYLENE GLYCOL 3350
  7. FLONASE [Concomitant]
     Active Substance: FLUTICASONE PROPIONATE
  8. VITAMIN D [Concomitant]
     Active Substance: VITAMIN D NOS
  9. FLAXSEED [Concomitant]
     Active Substance: FLAX SEED
  10. VERAPAMIL [Concomitant]
     Active Substance: VERAPAMIL HYDROCHLORIDE
  11. POTASSIUM CHLORIDE. [Concomitant]
     Active Substance: POTASSIUM CHLORIDE
  12. LASIX [Concomitant]
     Active Substance: FUROSEMIDE
  13. DOCUSATE SODIUM. [Concomitant]
     Active Substance: DOCUSATE SODIUM
  14. ERYTHROMYCIN. [Concomitant]
     Active Substance: ERYTHROMYCIN
  15. PREDNISONE. [Concomitant]
     Active Substance: PREDNISONE
  16. PROTONIX [Concomitant]
     Active Substance: PANTOPRAZOLE SODIUM
  17. VITAMIN C [Concomitant]
     Active Substance: ASCORBIC ACID
  18. SPIRIVA [Concomitant]
     Active Substance: TIOTROPIUM BROMIDE MONOHYDRATE
  19. LANTUS [Concomitant]
     Active Substance: INSULIN GLARGINE
  20. RUZURGI [Suspect]
     Active Substance: AMIFAMPRIDINE
     Indication: MYASTHENIC SYNDROME
     Route: 048
     Dates: start: 20200404
  21. KEPPRA [Concomitant]
     Active Substance: LEVETIRACETAM
  22. PRESERVISION [Concomitant]
     Active Substance: MINERALS\VITAMINS
  23. ASPIRIN. [Concomitant]
     Active Substance: ASPIRIN
  24. INSULIN LISPRO [Concomitant]
     Active Substance: INSULIN LISPRO

REACTIONS (1)
  - Death [Fatal]
